FAERS Safety Report 21576549 (Version 3)
Quarter: 2023Q1

REPORT INFORMATION
  Report Type: Spontaneous
  Country: US (occurrence: US)
  Receive Date: 20221110
  Receipt Date: 20230310
  Transmission Date: 20230417
  Serious: Yes (Other)
  Sender: FDA-Public Use
  Company Number: US-BEH-2022151619

PATIENT
  Sex: Female
  Weight: 71.655 kg

DRUGS (4)
  1. HIZENTRA [Suspect]
     Active Substance: HUMAN IMMUNOGLOBULIN G
     Indication: Immunodeficiency common variable
     Dosage: 16 GRAM, QOW
     Route: 058
     Dates: start: 20161212
  2. HIZENTRA [Suspect]
     Active Substance: HUMAN IMMUNOGLOBULIN G
     Indication: Osteoarthritis
     Dosage: 16 GRAM, QOW
     Route: 058
     Dates: start: 201612
  3. HIZENTRA [Suspect]
     Active Substance: HUMAN IMMUNOGLOBULIN G
     Dosage: 16 GRAM, QOW
     Route: 065
     Dates: start: 2006
  4. HIZENTRA [Suspect]
     Active Substance: HUMAN IMMUNOGLOBULIN G
     Dosage: 16 GRAM, QOW
     Route: 058
     Dates: start: 202208

REACTIONS (11)
  - Appendicitis [Unknown]
  - Pain [Unknown]
  - No adverse event [Unknown]
  - Off label use [Unknown]
  - Weight decreased [Unknown]
  - Weight fluctuation [Unknown]
  - Oophorectomy [Unknown]
  - Salpingectomy [Unknown]
  - Weight decreased [Unknown]
  - Gastroenteritis viral [Unknown]
  - Vomiting [Unknown]

NARRATIVE: CASE EVENT DATE: 20220101
